FAERS Safety Report 9520343 (Version 2)
Quarter: 2013Q3

REPORT INFORMATION
  Report Type: Spontaneous
  Country: IT (occurrence: IT)
  Receive Date: 20130912
  Receipt Date: 20130912
  Transmission Date: 20140515
  Serious: Yes (Other)
  Sender: FDA-Public Use
  Company Number: CHPA2013IT013819

PATIENT
  Age: 61 Year
  Sex: Female

DRUGS (5)
  1. IBUPROFEN [Suspect]
     Indication: ARTHRALGIA
     Dosage: 1 DF, UNK
     Route: 048
     Dates: start: 20130814, end: 20130814
  2. LORTAAN [Concomitant]
  3. EUTIROX [Concomitant]
  4. MEDROL [Concomitant]
  5. LASIX [Concomitant]

REACTIONS (3)
  - Oedema [Recovered/Resolved]
  - Arthralgia [Recovered/Resolved]
  - Anaphylactic reaction [Recovered/Resolved]
